FAERS Safety Report 16130151 (Version 7)
Quarter: 2020Q1

REPORT INFORMATION
  Report Type: Spontaneous
  Country: JP (occurrence: JP)
  Receive Date: 20190328
  Receipt Date: 20200117
  Transmission Date: 20200409
  Serious: Yes (Other)
  Sender: FDA-Public Use
  Company Number: JP-ASTRAZENECA-2019SE46122

PATIENT
  Age: 23775 Day
  Sex: Female
  Weight: 59 kg

DRUGS (10)
  1. TAGRISSO [Suspect]
     Active Substance: OSIMERTINIB
     Indication: LUNG ADENOCARCINOMA STAGE IV
     Route: 048
     Dates: start: 20190129
  2. DENOTAS [Concomitant]
     Active Substance: CALCIUM CARBONATE\CHOLECALCIFEROL\MAGNESIUM CARBONATE
     Dosage: DAILY
     Route: 048
     Dates: start: 20181109
  3. AMLODIPINE [Concomitant]
     Active Substance: AMLODIPINE BESYLATE
     Route: 048
  4. BAKTAR [Concomitant]
     Active Substance: SULFAMETHOXAZOLE\TRIMETHOPRIM
     Dosage: DAILY
     Route: 048
     Dates: start: 20190513
  5. LOXOPROFEN [Concomitant]
     Active Substance: LOXOPROFEN
     Route: 048
  6. TEPRENONE [Concomitant]
     Active Substance: TEPRENONE
     Route: 048
  7. TIZANIDINE. [Concomitant]
     Active Substance: TIZANIDINE
     Route: 048
  8. TAGRISSO [Suspect]
     Active Substance: OSIMERTINIB
     Indication: LUNG ADENOCARCINOMA STAGE IV
     Route: 048
     Dates: start: 20181119, end: 20190123
  9. NEXIUM [Concomitant]
     Active Substance: ESOMEPRAZOLE MAGNESIUM
     Route: 048
  10. TELMISARTAN. [Concomitant]
     Active Substance: TELMISARTAN
     Route: 048

REACTIONS (2)
  - Rash [Recovering/Resolving]
  - Cutaneous vasculitis [Recovering/Resolving]

NARRATIVE: CASE EVENT DATE: 20190101
